FAERS Safety Report 5228254-2 (Version None)
Quarter: 2007Q1

REPORT INFORMATION
  Report Type: 
  Country: None (occurrence: None)
  Receive Date: 20070205
  Receipt Date: 20070124
  Transmission Date: 20070707
  Serious: Yes (Hospitalization, Other)
  Sender: FDA-Public Use
  Company Number: US-ELI_LILLY_AND_COMPANY-US200609004142

PATIENT
  Age: 48 Year
  Sex: Male
  Weight: 61.678 kg

DRUGS (4)
  1. ZYPREXA [Suspect]
     Indication: HALLUCINATION
     Dosage: 10 MG, UNK
     Route: 065
     Dates: start: 19960101, end: 20030101
  2. CLOZAPINE [Concomitant]
     Dates: start: 19980101, end: 20010101
  3. QUETIAPINE FUMARATE [Concomitant]
     Dates: start: 19970101, end: 20040101
  4. CHLORPROMAZINE [Concomitant]
     Dates: start: 19970101, end: 20030101

REACTIONS (11)
  - BIOPSY LIVER [None]
  - BLOOD CHOLESTEROL ABNORMAL [None]
  - DIABETES MELLITUS [None]
  - DIABETIC COMA [None]
  - HEPATITIS C [None]
  - HEPATITIS VIRAL [None]
  - HYPERTENSION [None]
  - INSULIN RESISTANCE [None]
  - METABOLIC DISORDER [None]
  - PANCREATITIS [None]
  - WEIGHT DECREASED [None]
